FAERS Safety Report 5472319-7 (Version None)
Quarter: 2007Q3

REPORT INFORMATION
  Report Type: 
  Country: None (occurrence: None)
  Receive Date: 20070927
  Receipt Date: 20070918
  Transmission Date: 20080115
  Serious: Yes (Hospitalization)
  Sender: FDA-Public Use
  Company Number: 2007BI018384

PATIENT
  Sex: Female
  Weight: 90.7194 kg

DRUGS (1)
  1. TYSABRI [Suspect]
     Dosage: 300 MG; QM; IV
     Route: 042
     Dates: start: 20070501

REACTIONS (7)
  - EYE PRURITUS [None]
  - HERPES ZOSTER [None]
  - JOINT DISLOCATION [None]
  - NASAL DISCOMFORT [None]
  - PAIN [None]
  - RASH PRURITIC [None]
  - URTICARIA [None]
